FAERS Safety Report 10133162 (Version 2)
Quarter: 2014Q2

REPORT INFORMATION
  Report Type: Spontaneous
  Country: IT (occurrence: IT)
  Receive Date: 20140428
  Receipt Date: 20140428
  Transmission Date: 20141212
  Serious: Yes (Death, Hospitalization)
  Sender: FDA-Public Use
  Company Number: IT-TEVA-461436ISR

PATIENT
  Age: 62 Year
  Sex: Female

DRUGS (1)
  1. AMOXICILLIN [Suspect]
     Indication: TOOTHACHE
     Dosage: 2 GRAM DAILY;
     Route: 048
     Dates: start: 20140127, end: 20140129

REACTIONS (2)
  - Death [Fatal]
  - Bronchospasm [Recovering/Resolving]
